FAERS Safety Report 5467130-7 (Version None)
Quarter: 2007Q3

REPORT INFORMATION
  Report Type: 
  Country: None (occurrence: None)
  Receive Date: 20070925
  Receipt Date: 20070920
  Transmission Date: 20080115
  Serious: Yes (Other)
  Sender: FDA-Public Use
  Company Number: US-MERCK-0709USA03414

PATIENT
  Age: 86 Year
  Sex: Female

DRUGS (2)
  1. FOSAMAX [Suspect]
     Indication: OSTEOPOROSIS
     Route: 048
     Dates: start: 19970101
  2. [THERAPY UNSPECIFIED] [Concomitant]
     Indication: BLOOD PRESSURE ABNORMAL
     Route: 065

REACTIONS (6)
  - HIP FRACTURE [None]
  - NAUSEA [None]
  - SKULL FRACTURE [None]
  - SPINAL COMPRESSION FRACTURE [None]
  - UPPER LIMB FRACTURE [None]
  - WRONG TECHNIQUE IN DRUG USAGE PROCESS [None]
